APPROVED DRUG PRODUCT: ZINACEF
Active Ingredient: CEFUROXIME SODIUM
Strength: EQ 750MG BASE/VIAL **Federal Register determination that product was not discontinued or withdrawn for safety or effectiveness reasons**
Dosage Form/Route: INJECTABLE;INTRAMUSCULAR, INTRAVENOUS
Application: N050558 | Product #002
Applicant: PAI HOLDINGS LLC DBA PHARMACEUTICAL ASSOCIATES INC
Approved: Oct 19, 1983 | RLD: Yes | RS: No | Type: DISCN